FAERS Safety Report 11888771 (Version 3)
Quarter: 2016Q1

REPORT INFORMATION
  Report Type: Spontaneous
  Country: JP (occurrence: JP)
  Receive Date: 20160105
  Receipt Date: 20160129
  Transmission Date: 20160526
  Serious: Yes (Death)
  Sender: FDA-Public Use
  Company Number: JP-PFIZER INC-2015473744

PATIENT
  Age: 45 Year
  Sex: Female

DRUGS (5)
  1. TYGACIL [Suspect]
     Active Substance: TIGECYCLINE
     Indication: CHOLECYSTITIS
     Dosage: 100 MG, UNK
     Route: 041
     Dates: start: 20151214, end: 20151214
  2. COLISTIN SODIUM METHANESULFONATE [Suspect]
     Active Substance: COLISTIN A SODIUM METHANESULFONATE
     Indication: CHOLECYSTITIS
     Dosage: UNK
     Route: 041
     Dates: end: 20151216
  3. TYGACIL [Suspect]
     Active Substance: TIGECYCLINE
     Dosage: 50 MG, UNK
     Route: 041
     Dates: start: 20151215, end: 20151215
  4. MEROPEN /01250501/ [Suspect]
     Active Substance: MEROPENEM
     Indication: CHOLECYSTITIS
     Dosage: UNK
     Route: 041
  5. AZTREONAM. [Suspect]
     Active Substance: AZTREONAM
     Indication: CHOLECYSTITIS
     Dosage: UNK
     Route: 041
     Dates: start: 20151216

REACTIONS (2)
  - Off label use [Unknown]
  - Condition aggravated [Fatal]

NARRATIVE: CASE EVENT DATE: 201512
